FAERS Safety Report 5412213-0 (Version None)
Quarter: 2007Q3

REPORT INFORMATION
  Report Type: 
  Country: None (occurrence: None)
  Receive Date: 20070810
  Receipt Date: 20070810
  Transmission Date: 20080115
  Serious: Yes (Life-Threatening, Hospitalization)
  Sender: FDA-Public Use
  Company Number: None

PATIENT
  Age: 77 Year
  Sex: Male
  Weight: 73.4827 kg

DRUGS (19)
  1. ROSUVASTATIN [Suspect]
     Indication: HYPERLIPIDAEMIA
     Dosage: 20MG EVERY DAY PO
     Route: 048
     Dates: start: 20061031, end: 20070621
  2. GEMFIBROZIL [Suspect]
     Indication: HYPERLIPIDAEMIA
     Dosage: 600MG BID PO
     Route: 048
     Dates: start: 20040831, end: 20070621
  3. CAPSAICIN [Concomitant]
  4. LORAZEPAM [Concomitant]
  5. ACCU-CHEK COMFORT CV (GLUCOSE) TEST STRIP [Concomitant]
  6. FLUNISOLIDE [Concomitant]
  7. ASPIRIN [Concomitant]
  8. BENAZEPRIL HCL [Concomitant]
  9. DOCUSATE NA [Concomitant]
  10. GEMFIBROZIL [Concomitant]
  11. GLIPIZIDE [Concomitant]
  12. IPRATROPIUM BROMIDE [Concomitant]
  13. ISOSORBIDE MONONITRATE [Concomitant]
  14. LANCET,TECHLITE [Concomitant]
  15. METOPROLOL TARTRATE [Concomitant]
  16. OMEPRAZOLE [Concomitant]
  17. SELENIUM SULFIDE [Concomitant]
  18. ALBUTEROL [Concomitant]
  19. ROSUVASTATIN CA [Concomitant]

REACTIONS (2)
  - HEPATIC ENZYME INCREASED [None]
  - RHABDOMYOLYSIS [None]
